FAERS Safety Report 15081840 (Version 13)
Quarter: 2019Q3

REPORT INFORMATION
  Report Type: Spontaneous
  Country: US (occurrence: US)
  Receive Date: 20180628
  Receipt Date: 20190923
  Transmission Date: 20191004
  Serious: Yes (Hospitalization, Other)
  Sender: FDA-Public Use
  Company Number: US-PFIZER INC-2018260075

PATIENT
  Age: 58 Year
  Sex: Male
  Weight: 113.4 kg

DRUGS (7)
  1. CALCIUM HIGH CAL + VITAMIN D [Concomitant]
     Dosage: 500 MG, 3X/DAY
  2. NICOTROL [Suspect]
     Active Substance: NICOTINE
     Dosage: UNK
     Route: 055
     Dates: start: 2018, end: 2018
  3. THYROGEN [Concomitant]
     Active Substance: THYROTROPIN ALFA
     Dosage: UNK
  4. ATORVASTATIN [Concomitant]
     Active Substance: ATORVASTATIN
     Indication: BLOOD CHOLESTEROL ABNORMAL
     Dosage: 20 MG, 1X/DAY
  5. NICOTINE. [Concomitant]
     Active Substance: NICOTINE
     Indication: SMOKING CESSATION THERAPY
     Dosage: UNK
  6. NICORETTE [Concomitant]
     Active Substance: NICOTINE
     Dosage: UNK
  7. NICOTROL [Suspect]
     Active Substance: NICOTINE
     Indication: SMOKING CESSATION THERAPY
     Dosage: 10 MG CARTRIDGE DELIVERS 4 MG, 1-2 PUFFS AS NEEDED
     Route: 055
     Dates: start: 201804, end: 20180702

REACTIONS (25)
  - Multiple fractures [Unknown]
  - Condition aggravated [Unknown]
  - Dizziness [Unknown]
  - Muscle spasms [Unknown]
  - Anxiety [Unknown]
  - Panic attack [Unknown]
  - Oedema peripheral [Unknown]
  - Wrist fracture [Unknown]
  - Chest injury [Unknown]
  - Aphonia [Unknown]
  - Myalgia [Unknown]
  - Oedema [Unknown]
  - Upper limb fracture [Unknown]
  - Lower limb fracture [Unknown]
  - Malaise [Unknown]
  - Fall [Unknown]
  - Hand fracture [Unknown]
  - Drug ineffective [Unknown]
  - Product quality issue [Unknown]
  - Suicidal ideation [Unknown]
  - Weight increased [Unknown]
  - Thyroid mass [Unknown]
  - Inflammation [Unknown]
  - Muscle disorder [Unknown]
  - Contusion [Unknown]

NARRATIVE: CASE EVENT DATE: 2018
